FAERS Safety Report 6641833-0 (Version None)
Quarter: 2010Q1

REPORT INFORMATION
  Report Type: 
  Country: None (occurrence: None)
  Receive Date: 20100319
  Receipt Date: 20100309
  Transmission Date: 20100710
  Serious: Yes (Hospitalization, Other)
  Sender: FDA-Public Use
  Company Number: US-JNJFOC-20100210399

PATIENT
  Age: 75 Year
  Sex: Male

DRUGS (11)
  1. LEVOFLOXACIN [Suspect]
     Indication: ADVERSE EVENT
     Route: 065
  2. LEVOFLOXACIN [Suspect]
     Indication: ESCHERICHIA INFECTION
     Route: 065
  3. AMPICILLIN [Suspect]
     Indication: DRUG USE FOR UNKNOWN INDICATION
     Route: 065
  4. AMPICILLIN [Suspect]
     Indication: ESCHERICHIA INFECTION
     Route: 065
  5. TRIMETHOPRIM + SULFAMETHOXAZOLE [Suspect]
     Indication: DRUG USE FOR UNKNOWN INDICATION
     Route: 065
  6. TRIMETHOPRIM + SULFAMETHOXAZOLE [Suspect]
     Indication: ESCHERICHIA INFECTION
     Route: 065
  7. METRONIDAZOLE [Suspect]
     Indication: DRUG USE FOR UNKNOWN INDICATION
     Route: 065
  8. METRONIDAZOLE [Suspect]
     Indication: ESCHERICHIA INFECTION
     Route: 065
  9. ALLOPURINOL [Concomitant]
     Route: 065
  10. ENALAPRIL MALEATE [Concomitant]
     Route: 065
  11. PROPRANOLOL [Concomitant]
     Route: 065

REACTIONS (9)
  - ABDOMINAL PAIN [None]
  - ANHEDONIA [None]
  - DEHYDRATION [None]
  - DEPRESSION [None]
  - DISTURBANCE IN ATTENTION [None]
  - PSYCHOMOTOR RETARDATION [None]
  - RENAL FAILURE ACUTE [None]
  - SUICIDAL IDEATION [None]
  - VOMITING [None]
